FAERS Safety Report 13115582 (Version 3)
Quarter: 2017Q1

REPORT INFORMATION
  Report Type: Spontaneous
  Country: FR (occurrence: FR)
  Receive Date: 20170114
  Receipt Date: 20170322
  Transmission Date: 20170428
  Serious: Yes (Other)
  Sender: FDA-Public Use
  Company Number: FR-009507513-1701FRA005663

PATIENT
  Age: 82 Year
  Sex: Female

DRUGS (1)
  1. PEMBROLIZUMAB. [Suspect]
     Active Substance: PEMBROLIZUMAB
     Indication: METASTATIC MALIGNANT MELANOMA
     Dosage: 10 MG/KG EVERY 3 WEEKS OR 2 MG/KG EVERY 2 WEEKS IN 3 CASES AND 11 INFUSIONS IN 1 CASE
     Route: 042

REACTIONS (1)
  - Interstitial lung disease [Recovering/Resolving]
